FAERS Safety Report 5988808-2 (Version None)
Quarter: 2008Q4

REPORT INFORMATION
  Report Type: 
  Country: None (occurrence: None)
  Receive Date: 20081210
  Receipt Date: 20081204
  Transmission Date: 20090506
  Serious: Yes (Other)
  Sender: FDA-Public Use
  Company Number: JP-ABBOTT-08P-087-0491378-00

PATIENT

DRUGS (1)
  1. SEVOFLURANE [Suspect]
     Indication: GENERAL ANAESTHESIA
     Dosage: NOT REPORTED

REACTIONS (2)
  - ANAPHYLACTIC REACTION [None]
  - ARTERIOSPASM CORONARY [None]
